FAERS Safety Report 7608555-0 (Version None)
Quarter: 2011Q3

REPORT INFORMATION
  Report Type: 
  Country: None (occurrence: None)
  Receive Date: 20110714
  Receipt Date: 20110705
  Transmission Date: 20111222
  Serious: Yes (Hospitalization)
  Sender: FDA-Public Use
  Company Number: PHHY2011US55764

PATIENT
  Sex: Female

DRUGS (5)
  1. ABILIFY [Concomitant]
     Dosage: UNK UKN, QD
     Route: 048
  2. BACLOFEN [Concomitant]
     Dosage: UNK UKN, UNK
     Route: 048
  3. COGITUM [Concomitant]
     Dosage: UNK UKN, UNK
     Route: 048
  4. ZOLOFT [Concomitant]
     Dosage: UNK UKN, QD
     Route: 048
  5. GILENYA [Suspect]
     Indication: MULTIPLE SCLEROSIS
     Dosage: UNK UKN, UNK
     Route: 048
     Dates: start: 20110101, end: 20110501

REACTIONS (4)
  - CONVULSION [None]
  - MULTIPLE SCLEROSIS RELAPSE [None]
  - LOSS OF CONSCIOUSNESS [None]
  - APHASIA [None]
